FAERS Safety Report 9571065 (Version 2)
Quarter: 2013Q4

REPORT INFORMATION
  Report Type: Spontaneous
  Country: US (occurrence: None)
  Receive Date: 20130927
  Receipt Date: 20131115
  Transmission Date: 20140711
  Serious: Yes (Hospitalization)
  Sender: FDA-Public Use
  Company Number: 2013US002534

PATIENT
  Age: 45 Year
  Sex: Male
  Weight: 91.2 kg

DRUGS (7)
  1. ICLUSING [Suspect]
     Indication: CHRONIC MYELOID LEUKAEMIA
     Route: 048
     Dates: start: 20130418
  2. AMLODIPINE [Concomitant]
  3. ABILIFY [Concomitant]
  4. METOPROLOL [Concomitant]
  5. KLOR-CON [Concomitant]
  6. HYDROCHLOROTHIAZIDE [Concomitant]
  7. REGLAN [Concomitant]

REACTIONS (1)
  - Convulsion [None]
